FAERS Safety Report 7992380-5 (Version None)
Quarter: 2011Q4

REPORT INFORMATION
  Report Type: 
  Country: None (occurrence: None)
  Receive Date: 20111219
  Receipt Date: 20110318
  Transmission Date: 20120403
  Serious: No
  Sender: FDA-Public Use
  Company Number: US-ASTRAZENECA-2011SE15515

PATIENT
  Age: 67 Year
  Sex: Female
  Weight: 106.1 kg

DRUGS (5)
  1. CRESTOR [Suspect]
     Route: 048
  2. LISINOPRIL [Concomitant]
     Indication: CARDIOMYOPATHY
  3. METOPROLOL [Concomitant]
     Indication: CARDIOMYOPATHY
  4. ADACIN [Concomitant]
  5. COUMADIN [Concomitant]

REACTIONS (2)
  - ABDOMINAL PAIN LOWER [None]
  - DIARRHOEA [None]
